FAERS Safety Report 6265922-8 (Version None)
Quarter: 2009Q3

REPORT INFORMATION
  Report Type: 
  Country: None (occurrence: None)
  Receive Date: 20090709
  Receipt Date: 20090709
  Transmission Date: 20100115
  Serious: Yes (Disabling)
  Sender: FDA-Public Use
  Company Number: None

PATIENT
  Age: 55 Year
  Sex: Male
  Weight: 103.4201 kg

DRUGS (2)
  1. LEVAQUIN [Suspect]
     Indication: POLLAKIURIA
     Dates: start: 20090306, end: 20090316
  2. LEVAQUIN [Suspect]
     Indication: PROSTATITIS
     Dates: start: 20090306, end: 20090316

REACTIONS (1)
  - TENDON RUPTURE [None]
